FAERS Safety Report 8158889-9 (Version None)
Quarter: 2012Q1

REPORT INFORMATION
  Report Type: 
  Country: None (occurrence: None)
  Receive Date: 20120223
  Receipt Date: 20120217
  Transmission Date: 20120608
  Serious: Yes (Death)
  Sender: FDA-Public Use
  Company Number: PT-BRISTOL-MYERS SQUIBB COMPANY-16391930

PATIENT
  Sex: Male

DRUGS (1)
  1. ATAZANAVIR [Suspect]

REACTIONS (1)
  - BLEEDING VARICOSE VEIN [None]
